FAERS Safety Report 8678933 (Version 2)
Quarter: 2013Q1

REPORT INFORMATION
  Report Type: Report from Study
  Country: GB (occurrence: GB)
  Receive Date: 20120723
  Receipt Date: 20130306
  Transmission Date: 20140127
  Serious: Yes (Death, Hospitalization)
  Sender: FDA-Public Use
  Company Number: GB-ROCHE-1090248

PATIENT
  Sex: Male
  Weight: 81 kg

DRUGS (2)
  1. TOCILIZUMAB [Suspect]
     Indication: RHEUMATOID ARTHRITIS
     Dosage: LAST DOSE PRIOR TO SAE: 01/MAY/2012
     Route: 065
     Dates: start: 20120306
  2. METHOTREXATE [Concomitant]

REACTIONS (4)
  - Interstitial lung disease [Fatal]
  - Pulmonary fibrosis [Fatal]
  - Multi-organ failure [Fatal]
  - Septic shock [Unknown]
